FAERS Safety Report 4919359-1 (Version None)
Quarter: 2006Q1

REPORT INFORMATION
  Report Type: 
  Country: None (occurrence: None)
  Receive Date: 20060216
  Receipt Date: 20060131
  Transmission Date: 20060701
  Serious: Yes (Life-Threatening, Hospitalization)
  Sender: FDA-Public Use
  Company Number: 200610611BWH

PATIENT
  Age: 52 Year
  Sex: Male

DRUGS (3)
  1. TRASYLOL [Suspect]
     Indication: CORONARY ARTERY SURGERY
     Dosage: 200 ML, ONCE, INTRAVENOUS
     Route: 042
     Dates: start: 20060114
  2. TRASYLOL [Suspect]
     Indication: SURGERY
     Dosage: 200 ML, ONCE, INTRAVENOUS
     Route: 042
     Dates: start: 20060114
  3. PROTAMINE SULFATE [Concomitant]

REACTIONS (7)
  - ANGIOPATHY [None]
  - CARDIOGENIC SHOCK [None]
  - GRAFT THROMBOSIS [None]
  - LEG AMPUTATION [None]
  - RENAL FAILURE [None]
  - THROMBOSIS [None]
  - VASCULAR PROCEDURE COMPLICATION [None]
